FAERS Safety Report 17132351 (Version 3)
Quarter: 2020Q1

REPORT INFORMATION
  Report Type: Spontaneous
  Country: FI (occurrence: FI)
  Receive Date: 20191210
  Receipt Date: 20200305
  Transmission Date: 20200409
  Serious: Yes (Other)
  Sender: FDA-Public Use
  Company Number: FI-AUROBINDO-AUR-APL-2019-103248

PATIENT
  Age: 74 Year
  Sex: Male

DRUGS (1)
  1. ROSUVASTATIN ORION 20MG FILM-COATED TABLETS [Suspect]
     Active Substance: ROSUVASTATIN CALCIUM
     Indication: BLOOD CHOLESTEROL
     Dosage: 1 DOSAGE FORM (IN THE EVENING)
     Route: 048
     Dates: start: 20191030, end: 20191123

REACTIONS (3)
  - Incoherent [Unknown]
  - Loss of consciousness [Unknown]
  - Blood pressure decreased [Unknown]

NARRATIVE: CASE EVENT DATE: 20191123
